FAERS Safety Report 16701939 (Version 1)
Quarter: 2019Q3

REPORT INFORMATION
  Report Type: Spontaneous
  Country: ES (occurrence: ES)
  Receive Date: 20190802
  Receipt Date: 20190802
  Transmission Date: 20191004
  Serious: Yes (Life-Threatening)
  Sender: FDA-Public Use
  Company Number: None

PATIENT
  Age: 35 Year
  Sex: Female
  Weight: 80 kg

DRUGS (8)
  1. TOPIRAMATE. [Suspect]
     Active Substance: TOPIRAMATE
  2. VENLAFAXINE [Suspect]
     Active Substance: VENLAFAXINE HYDROCHLORIDE
  3. COLLAGEN [Concomitant]
     Active Substance: COLLAGEN
  4. VITAMIN C [Concomitant]
     Active Substance: ASCORBIC ACID
  5. HYALURONIC ACID [Concomitant]
     Active Substance: HYALURONIC ACID
  6. PREGABALIN. [Suspect]
     Active Substance: PREGABALIN
  7. FOLIC ACID. [Concomitant]
     Active Substance: FOLIC ACID
  8. VITAMIN E [Concomitant]
     Active Substance: .ALPHA.-TOCOPHEROL

REACTIONS (5)
  - Headache [None]
  - Constipation [None]
  - Visual acuity reduced [None]
  - Dry mouth [None]
  - Myopia [None]

NARRATIVE: CASE EVENT DATE: 20150101
